FAERS Safety Report 9840044 (Version 1)
Quarter: 2013Q4

REPORT INFORMATION
  Report Type: Spontaneous
  Country: US (occurrence: None)
  Receive Date: 20131206
  Receipt Date: 20131206
  Transmission Date: 20140711
  Serious: Yes (Hospitalization)
  Sender: FDA-Public Use
  Company Number: 373133

PATIENT
  Age: 74 Year
  Sex: Male

DRUGS (2)
  1. NOVOLOG MIX 70/30 [Suspect]
     Indication: DIABETES MELLITUS
     Dosage: UNK, SUBCUTANEOUS
     Route: 058
     Dates: start: 201203
  2. LANTUS (INSULIN GLARGINE) [Suspect]
     Indication: DIABETES MELLITUS
     Dosage: UNK, SUBCUTANOUES
     Route: 058
     Dates: start: 201203

REACTIONS (2)
  - Wrong drug administered [None]
  - Hypersensitivity [None]
